FAERS Safety Report 12037531 (Version 3)
Quarter: 2016Q1

REPORT INFORMATION
  Report Type: Spontaneous
  Country: JP (occurrence: JP)
  Receive Date: 20160208
  Receipt Date: 20160307
  Transmission Date: 20160526
  Serious: Yes (Hospitalization)
  Sender: FDA-Public Use
  Company Number: PHJP2016JP001746

PATIENT
  Age: 81 Year
  Sex: Male

DRUGS (8)
  1. EXELON PATCH [Suspect]
     Active Substance: RIVASTIGMINE
     Indication: DEMENTIA ALZHEIMER^S TYPE
     Dosage: 4.6 MG/24H (QD) (PATCH 5, RIVASTIGMINE BASE 9 MG)
     Route: 062
     Dates: start: 201512
  2. DOPS [Concomitant]
     Active Substance: DROXIDOPA
     Indication: PRODUCT USED FOR UNKNOWN INDICATION
     Dosage: 900 MG, UNK
     Route: 048
     Dates: start: 20160201
  3. BI-SIFROL [Concomitant]
     Active Substance: PRAMIPEXOLE
     Indication: PARKINSON^S DISEASE
     Dosage: UNK
     Route: 065
  4. EXELON PATCH [Suspect]
     Active Substance: RIVASTIGMINE
     Dosage: 6.9 MG/24H (PATCH 7.5, RIVASTIGMINE BASE 13.5 MG)
     Route: 062
  5. EXELON PATCH [Suspect]
     Active Substance: RIVASTIGMINE
     Dosage: 9.5 MG/24H (PATCH 10, RIVASTIGMINE BASE 18 MG)
     Route: 062
     Dates: start: 201601
  6. DOPACOL [Concomitant]
     Active Substance: CARBIDOPA\LEVODOPA
     Indication: PRODUCT USED FOR UNKNOWN INDICATION
     Dosage: 400 MG, UNK
     Route: 048
  7. PRAVASTATIN [Concomitant]
     Active Substance: PRAVASTATIN\PRAVASTATIN SODIUM
     Indication: PRODUCT USED FOR UNKNOWN INDICATION
     Dosage: 10 MG, UNK
     Route: 048
  8. EXELON PATCH [Suspect]
     Active Substance: RIVASTIGMINE
     Dosage: 9.5 MG/24H (PATCH 10, RIVASTIGMINE BASE 18 MG)
     Route: 062
     Dates: start: 20160201

REACTIONS (3)
  - Orthostatic hypotension [Recovering/Resolving]
  - Loss of consciousness [Unknown]
  - Incorrect dose administered [Recovered/Resolved]

NARRATIVE: CASE EVENT DATE: 201601
